FAERS Safety Report 5875978-X (Version None)
Quarter: 2008Q3

REPORT INFORMATION
  Report Type: 
  Country: None (occurrence: None)
  Receive Date: 20080905
  Receipt Date: 20080827
  Transmission Date: 20090109
  Serious: Yes (Death)
  Sender: FDA-Public Use
  Company Number: MSTR-NO-0807S-0037

PATIENT
  Age: 64 Year
  Sex: Male
  Weight: 65 kg

DRUGS (2)
  1. METASTRON [Suspect]
     Indication: METASTATIC PAIN
     Dosage: 3.7 ML, SINGLE DOSE, I.V.
     Route: 042
     Dates: start: 20080129, end: 20080129
  2. GEFITINIB [Concomitant]

REACTIONS (1)
  - DEATH [None]
